FAERS Safety Report 8176999-7 (Version None)
Quarter: 2012Q1

REPORT INFORMATION
  Report Type: 
  Country: None (occurrence: None)
  Receive Date: 20120301
  Receipt Date: 20120224
  Transmission Date: 20120608
  Serious: Yes (Other)
  Sender: FDA-Public Use
  Company Number: AU-AMGEN-AUSSP2012008249

PATIENT
  Age: 51 Year
  Sex: Female

DRUGS (5)
  1. GEMCITABINE [Concomitant]
     Indication: OVARIAN CANCER
     Dosage: UNK
     Dates: start: 20100101
  2. VALPROATE SODIUM [Suspect]
     Dosage: UNK
  3. CARBOPLATIN [Concomitant]
     Indication: OVARIAN CANCER
     Dosage: UNK
     Dates: start: 20100101
  4. PACLITAXEL [Concomitant]
     Indication: OVARIAN CANCER
     Dosage: UNK
     Dates: start: 20100101
  5. NEULASTA [Suspect]
     Indication: OVARIAN CANCER
     Dosage: UNK UNK, PER CHEMO REGIM
     Dates: start: 20100101

REACTIONS (2)
  - DRUG EFFECT DECREASED [None]
  - OVARIAN CANCER RECURRENT [None]
